FAERS Safety Report 6587696-3 (Version None)
Quarter: 2010Q1

REPORT INFORMATION
  Report Type: 
  Country: None (occurrence: None)
  Receive Date: 20100218
  Receipt Date: 20100208
  Transmission Date: 20100710
  Serious: Yes (Death, Life-Threatening, Hospitalization, Disabling)
  Sender: FDA-Public Use
  Company Number: BG-BAYER-BG-2006-010115

PATIENT
  Age: 70 Year
  Sex: Female
  Weight: 60 kg

DRUGS (20)
  1. FLUDARABINE PHOSPHATE [Suspect]
     Indication: CHRONIC LYMPHOCYTIC LEUKAEMIA
     Route: 042
     Dates: start: 20051018, end: 20060322
  2. CAMPATH [Suspect]
     Indication: CHRONIC LYMPHOCYTIC LEUKAEMIA
     Route: 042
     Dates: start: 20051018, end: 20060322
  3. MEDOCEF [Concomitant]
  4. NOVPHILLIN [Concomitant]
  5. DEXAMETHASONE [Concomitant]
  6. BROMHEXINE [Concomitant]
  7. TAVIPEC (EXPECTORANT) [Concomitant]
  8. EGILOK [Concomitant]
     Indication: MYOCARDIAL ISCHAEMIA
     Dosage: 100 MG, UNK
     Route: 048
     Dates: start: 20020101, end: 20060605
  9. PREDNISOLONE F [Concomitant]
     Dosage: UNIT DOSE: 5 MG
  10. AZATRIL [Concomitant]
  11. FUNGOLON [Concomitant]
  12. NYTROLONG [Concomitant]
     Indication: MYOCARDIAL ISCHAEMIA
     Dosage: 20 MG, UNK
     Route: 048
     Dates: start: 20020101, end: 20060605
  13. DIGOXIN [Concomitant]
  14. RINGER [Concomitant]
     Indication: HYPOTENSION
     Dosage: 500 ML, UNK
     Route: 042
     Dates: start: 20060423
  15. GRANOCYTE [Concomitant]
  16. SOLU-MEDROL [Concomitant]
  17. DEXTROSE [Concomitant]
  18. CORTICOSTEROIDS [Concomitant]
  19. VITAMINS [Concomitant]
  20. CEFOPERAZONE SODIUM [Concomitant]
     Route: 065

REACTIONS (6)
  - CARDIOVASCULAR INSUFFICIENCY [None]
  - HEPATITIS [None]
  - MUCOSAL INFLAMMATION [None]
  - PANCYTOPENIA [None]
  - SKIN EXFOLIATION [None]
  - THROMBOCYTOPENIA [None]
